APPROVED DRUG PRODUCT: HALOPERIDOL LACTATE
Active Ingredient: HALOPERIDOL LACTATE
Strength: EQ 1MG BASE/ML
Dosage Form/Route: SOLUTION;ORAL
Application: A074536 | Product #001
Applicant: ACTAVIS MID ATLANTIC LLC
Approved: Nov 2, 1995 | RLD: No | RS: No | Type: DISCN